FAERS Safety Report 7007806-3 (Version None)
Quarter: 2010Q3

REPORT INFORMATION
  Report Type: 
  Country: None (occurrence: None)
  Receive Date: 20100922
  Receipt Date: 20100909
  Transmission Date: 20110219
  Serious: Yes (Hospitalization)
  Sender: FDA-Public Use
  Company Number: DE-ROCHE-724279

PATIENT
  Sex: Female
  Weight: 51 kg

DRUGS (6)
  1. TRASTUZUMAB [Suspect]
     Indication: BREAST CANCER
     Dosage: DOSE FORM: VIALS, LAST DOSE PRIOR TO SAE 25 AUGUST 2010, DOSE LEVEL: 6 MG/KG
     Route: 042
     Dates: start: 20100624
  2. TRASTUZUMAB [Suspect]
     Dosage: MATAINANCE DOSE: 312 MG
     Route: 042
  3. BEVACIZUMAB [Suspect]
     Indication: BREAST CANCER
     Dosage: DOSE LEVEL: 15 MG/KG, FORM: VIALS, LAST DOSE PRIOR TO SAE: 25 AUG 2010
     Route: 042
     Dates: start: 20100624
  4. DOCETAXEL [Suspect]
     Indication: BREAST CANCER
     Dosage: FORM: VIALS, DOSE LEVEL: 75 MG/M2, LAST DOSE PRIOR TO SAE 25 AUG 2010,
     Route: 042
     Dates: start: 20100624
  5. CARBOPLATIN [Suspect]
     Indication: BREAST CANCER
     Dosage: FORM: VIALS, DOSE LEVEL: 06 MG/ML/MIN (AUC), LAST DOSE PRIOR TO SAE: 25 AUG 2010
     Route: 042
     Dates: start: 20100624
  6. CITALOPRAM HYDROBROMIDE [Concomitant]
     Dates: start: 20060101

REACTIONS (1)
  - GASTRITIS [None]
